FAERS Safety Report 20643991 (Version 1)
Quarter: 2022Q1

REPORT INFORMATION
  Report Type: Report from Study
  Country: AT (occurrence: AT)
  Receive Date: 20220328
  Receipt Date: 20220328
  Transmission Date: 20220423
  Serious: Yes (Other)
  Sender: FDA-Public Use
  Company Number: AT-SA-2022SA101452

PATIENT
  Age: 57 Year
  Sex: Female

DRUGS (6)
  1. DOCETAXEL [Suspect]
     Active Substance: DOCETAXEL
     Indication: Non-small cell lung cancer stage IV
     Dosage: 25 MG/M2, QW
     Route: 042
  2. DOCETAXEL [Suspect]
     Active Substance: DOCETAXEL
     Indication: Lung adenocarcinoma stage IV
  3. DOCETAXEL [Suspect]
     Active Substance: DOCETAXEL
     Indication: Neoplasm progression
  4. NINTEDANIB [Concomitant]
     Active Substance: NINTEDANIB
     Indication: Non-small cell lung cancer stage IV
     Dosage: 200 MG, BID
     Route: 048
  5. NINTEDANIB [Concomitant]
     Active Substance: NINTEDANIB
     Indication: Lung adenocarcinoma stage IV
     Dosage: MAINTENANCE THERAPY
  6. NINTEDANIB [Concomitant]
     Active Substance: NINTEDANIB
     Indication: Neoplasm progression

REACTIONS (3)
  - Leukopenia [Unknown]
  - Anaemia [Unknown]
  - Fatigue [Unknown]
